FAERS Safety Report 11474909 (Version 1)
Quarter: 2015Q3

REPORT INFORMATION
  Report Type: Spontaneous
  Country: US (occurrence: None)
  Receive Date: 20150902
  Receipt Date: 20150902
  Transmission Date: 20151125
  Serious: Yes (Hospitalization)
  Sender: FDA-Public Use
  Company Number: A-US2014-109544

PATIENT
  Age: 57 Year
  Sex: Male

DRUGS (2)
  1. VIAGRA (SLIDENAFIL CITRATE) [Concomitant]
  2. VELETRI [Suspect]
     Active Substance: EPOPROSTENOL
     Indication: PULMONARY HYPERTENSION
     Dosage: 22 NG/KG. PER MIN
     Route: 041
     Dates: start: 20130621

REACTIONS (2)
  - Thrombosis in device [None]
  - Device alarm issue [None]

NARRATIVE: CASE EVENT DATE: 20141203
